FAERS Safety Report 20669138 (Version 1)
Quarter: 2022Q2

REPORT INFORMATION
  Report Type: Spontaneous
  Country: US (occurrence: None)
  Receive Date: 20220402
  Receipt Date: 20220402
  Transmission Date: 20220721
  Serious: Yes (Death)
  Sender: FDA-Public Use
  Company Number: None

PATIENT
  Age: 17 Year
  Sex: Female
  Weight: 72 kg

DRUGS (1)
  1. ISOTRETINOIN [Suspect]
     Active Substance: ISOTRETINOIN
     Indication: Acne
     Route: 048
     Dates: start: 20190101, end: 20190606

REACTIONS (6)
  - Pruritus [None]
  - Dry skin [None]
  - Lip dry [None]
  - Acne [None]
  - Completed suicide [None]
  - Depression [None]

NARRATIVE: CASE EVENT DATE: 20190607
